FAERS Safety Report 15561299 (Version 1)
Quarter: 2018Q4

REPORT INFORMATION
  Report Type: Spontaneous
  Country: US (occurrence: US)
  Receive Date: 20181023
  Receipt Date: 20181023
  Transmission Date: 20190205
  Serious: Yes (Life-Threatening, Hospitalization, Disabling)
  Sender: FDA-Public Use
  Company Number: None

PATIENT
  Age: 67 Year
  Sex: Female
  Weight: 71.67 kg

DRUGS (3)
  1. REGULAR VITAMIN [Concomitant]
  2. CALCIUM SUPPLEMENT [Concomitant]
     Active Substance: CALCIUM
  3. AMLODIPINE BESYLATE. [Suspect]
     Active Substance: AMLODIPINE BESYLATE
     Indication: HYPERTENSION
     Dosage: ?          QUANTITY:10 MG MILLIGRAM(S);?
     Route: 048
     Dates: start: 20150801, end: 20180923

REACTIONS (7)
  - Loss of consciousness [None]
  - Tremor [None]
  - Head injury [None]
  - Fall [None]
  - Nasal injury [None]
  - Dizziness [None]
  - Epistaxis [None]

NARRATIVE: CASE EVENT DATE: 20180918
